FAERS Safety Report 4775043-9 (Version None)
Quarter: 2005Q3

REPORT INFORMATION
  Report Type: 
  Country: None (occurrence: None)
  Receive Date: 20050920
  Receipt Date: 20050907
  Transmission Date: 20060218
  Serious: Yes (Death, Other)
  Sender: FDA-Public Use
  Company Number: 2005124309

PATIENT
  Age: 78 Year
  Sex: Male

DRUGS (7)
  1. PREDNISONE [Suspect]
     Indication: ALVEOLITIS
     Dosage: 15 MG (1 IN 1 D), ORAL
     Route: 048
     Dates: start: 20050214, end: 20050404
  2. CYCLOPHOSPHAMIDE [Suspect]
     Indication: ALVEOLITIS
     Dosage: INTRAVENOUS
     Route: 042
     Dates: start: 20050301, end: 20050429
  3. SULFALENE/TRIMETHOPRIM (SULFALENE, TRIMETHOPRIM) [Suspect]
     Indication: ILL-DEFINED DISORDER
     Dates: start: 20050101
  4. CALCIHEW-D3 (CALCIUM CARBONATE, COLECALCIFEROL) [Concomitant]
  5. BEHEPAN (CYANOCOBALAMIN) [Concomitant]
  6. BRUFEN (IBUPROFEN) [Concomitant]
  7. MESNA [Concomitant]

REACTIONS (9)
  - B-LYMPHOCYTE COUNT DECREASED [None]
  - C-REACTIVE PROTEIN INCREASED [None]
  - CHRONIC OBSTRUCTIVE PULMONARY DISEASE [None]
  - DRUG INEFFECTIVE [None]
  - LUNG CONSOLIDATION [None]
  - MONOCYTE COUNT DECREASED [None]
  - PNEUMOCYSTIS JIROVECI PNEUMONIA [None]
  - RED BLOOD CELL SEDIMENTATION RATE INCREASED [None]
  - WHITE BLOOD CELL COUNT INCREASED [None]
